FAERS Safety Report 24831452 (Version 1)
Quarter: 2025Q1

REPORT INFORMATION
  Report Type: Spontaneous
  Country: US (occurrence: None)
  Receive Date: 20250110
  Receipt Date: 20250110
  Transmission Date: 20250409
  Serious: No
  Sender: FDA-CTU
  Company Number: None

PATIENT

DRUGS (1)
  1. TERIFLUNOMIDE [Suspect]
     Active Substance: TERIFLUNOMIDE

REACTIONS (9)
  - Tremor [None]
  - Hypoaesthesia [None]
  - Gait inability [None]
  - Corrective lens user [None]
  - Dyspnoea [None]
  - Oxygen saturation decreased [None]
  - Pneumonia [None]
  - Hypersomnia [None]
  - Iron deficiency [None]
